FAERS Safety Report 9174448 (Version 1)
Quarter: 2013Q1

REPORT INFORMATION
  Report Type: Spontaneous
  Country: GB (occurrence: None)
  Receive Date: 20130318
  Receipt Date: 20130318
  Transmission Date: 20140127
  Serious: Yes (Other)
  Sender: FDA-Public Use
  Company Number: 2012-13059

PATIENT
  Age: 23 Year
  Sex: Male
  Weight: 111.5 kg

DRUGS (2)
  1. ACYCLOVIR [Suspect]
     Indication: ENCEPHALITIS
     Dosage: 10 MG/KG, Q8H, INTRAVENOUS
     Route: 042
  2. ACYCLOVIR [Suspect]
     Indication: MENINGITIS
     Dosage: 10 MG/KG, Q8H, INTRAVENOUS
     Route: 042

REACTIONS (6)
  - Renal failure acute [None]
  - Fatigue [None]
  - Diplopia [None]
  - Balance disorder [None]
  - Abnormal behaviour [None]
  - Fall [None]
